FAERS Safety Report 8593979 (Version 5)
Quarter: 2012Q4

REPORT INFORMATION
  Report Type: 
  Country: JP (occurrence: JP)
  Receive Date: 20120604
  Receipt Date: 20120828
  Transmission Date: 20130627
  Serious: Yes (Hospitalization)
  Sender: FDA-Public Use
  Company Number: JP-JNJFOC-20120600229

PATIENT
  Age: 87 Year
  Sex: Female
  Weight: 36 kg

DRUGS (4)
  1. REMINYL [Suspect]
     Indication: DEMENTIA
     Route: 048
     Dates: start: 20120511, end: 20120523
  2. GASMOTIN [Concomitant]
     Indication: DEMENTIA
     Route: 048
     Dates: end: 20120523
  3. METHYCOBAL [Concomitant]
     Indication: DEMENTIA
     Route: 048
     Dates: end: 20120523
  4. MAGMITT [Concomitant]
     Indication: DEMENTIA
     Route: 048
     Dates: end: 20120523

REACTIONS (1)
  - Cerebral infarction [Recovered/Resolved]
